FAERS Safety Report 7928821-9 (Version None)
Quarter: 2011Q4

REPORT INFORMATION
  Report Type: 
  Country: None (occurrence: None)
  Receive Date: 20111118
  Receipt Date: 20111117
  Transmission Date: 20120403
  Serious: Yes (Other)
  Sender: FDA-Public Use
  Company Number: CN-ABBOTT-11P-035-0875135-00

PATIENT
  Age: 21 Year
  Sex: Male

DRUGS (1)
  1. DEPAKENE [Suspect]
     Indication: EPILEPSY
     Route: 048
     Dates: start: 20100601

REACTIONS (6)
  - CONVULSION [None]
  - LOSS OF CONSCIOUSNESS [None]
  - FOAMING AT MOUTH [None]
  - URINARY INCONTINENCE [None]
  - EPILEPSY [None]
  - FALL [None]
